FAERS Safety Report 18214779 (Version 1)
Quarter: 2020Q3

REPORT INFORMATION
  Report Type: Spontaneous
  Country: CA (occurrence: CA)
  Receive Date: 20200831
  Receipt Date: 20200831
  Transmission Date: 20201103
  Serious: Yes (Hospitalization)
  Sender: FDA-Public Use
  Company Number: CA-TEVA-2020-CA-1819921

PATIENT
  Age: 78 Year
  Sex: Male

DRUGS (16)
  1. GLICLAZIDE [Concomitant]
     Active Substance: GLICLAZIDE
  2. VITAMIN B12 [Concomitant]
     Active Substance: CYANOCOBALAMIN
  3. CLOPIDOGREL [Suspect]
     Active Substance: CLOPIDOGREL BISULFATE
  4. PERINDOPRIL [Concomitant]
     Active Substance: PERINDOPRIL
  5. TRESIBA [Concomitant]
     Active Substance: INSULIN DEGLUDEC
  6. PANTOPRAZOLE [Concomitant]
     Active Substance: PANTOPRAZOLE
  7. TEVA?TICAGRELOR [Concomitant]
  8. AMLODIPINE [Concomitant]
     Active Substance: AMLODIPINE BESYLATE
  9. ATORVASTATIN [Concomitant]
     Active Substance: ATORVASTATIN
  10. DULOXETINE. [Concomitant]
     Active Substance: DULOXETINE
  11. ALFACALCIDOL [Concomitant]
     Active Substance: ALFACALCIDOL
  12. IRON [Concomitant]
     Active Substance: IRON
  13. PREGABALIN. [Concomitant]
     Active Substance: PREGABALIN
  14. ASA [Concomitant]
     Active Substance: ASPIRIN
  15. HYDRALAZINE [Concomitant]
     Active Substance: HYDRALAZINE HYDROCHLORIDE
  16. METOPROLOL. [Concomitant]
     Active Substance: METOPROLOL
     Route: 065

REACTIONS (3)
  - Anaemia [Unknown]
  - Lower gastrointestinal haemorrhage [Unknown]
  - Chronic kidney disease [Unknown]
